FAERS Safety Report 26074523 (Version 1)
Quarter: 2025Q4

REPORT INFORMATION
  Report Type: Spontaneous
  Country: TH (occurrence: TH)
  Receive Date: 20251121
  Receipt Date: 20251121
  Transmission Date: 20260117
  Serious: Yes (Death)
  Sender: ROCHE
  Company Number: TH-ROCHE-10000441862

PATIENT

DRUGS (4)
  1. TECENTRIQ [Suspect]
     Active Substance: ATEZOLIZUMAB
     Indication: Hepatocellular carcinoma
     Route: 065
     Dates: start: 20240418, end: 20250520
  2. AVASTIN [Suspect]
     Active Substance: BEVACIZUMAB
     Indication: Hepatocellular carcinoma
     Route: 065
     Dates: start: 20240418, end: 20250520
  3. NIVOLUMAB [Concomitant]
     Active Substance: NIVOLUMAB
     Dates: start: 20231214, end: 20240404
  4. LENVIMA [Concomitant]
     Active Substance: LENVATINIB
     Dates: start: 20230708, end: 20231111

REACTIONS (1)
  - Death [Fatal]

NARRATIVE: CASE EVENT DATE: 20240608
